FAERS Safety Report 9239482 (Version 1)
Quarter: 2013Q2

REPORT INFORMATION
  Report Type: Spontaneous
  Country: US (occurrence: US)
  Receive Date: 20130418
  Receipt Date: 20130418
  Transmission Date: 20140414
  Serious: Yes (Hospitalization)
  Sender: FDA-Public Use
  Company Number: US-SANOFI-AVENTIS-2012SA014491

PATIENT
  Age: 75 Year
  Sex: Male
  Weight: 68.5 kg

DRUGS (5)
  1. LOVENOX [Suspect]
     Indication: HIP SURGERY
     Route: 058
     Dates: start: 20120224
  2. LOVENOX [Suspect]
     Indication: HIP SURGERY
     Route: 058
     Dates: start: 201202
  3. PRILOSEC [Concomitant]
     Dates: start: 20120224, end: 20120421
  4. AMLODIPINE [Concomitant]
     Indication: BLOOD PRESSURE
     Dates: start: 20120224, end: 20120421
  5. VITAMIN C [Concomitant]

REACTIONS (3)
  - Deep vein thrombosis [Unknown]
  - Nodule [Unknown]
  - Injection site pain [Unknown]
